FAERS Safety Report 8797752 (Version 1)
Quarter: 2012Q4

REPORT INFORMATION
  Report Type: Spontaneous
  Country: US (occurrence: None)
  Receive Date: 20120914
  Receipt Date: 20120914
  Transmission Date: 20130627
  Serious: Yes (Life-Threatening, Hospitalization)
  Sender: FDA-Public Use
  Company Number: None

PATIENT
  Age: 40 Year
  Sex: Female
  Weight: 61.24 kg

DRUGS (4)
  1. EXCEDRIN MIGRAINE [Suspect]
     Indication: SINUS HEADACHE
     Dosage: 1-2 tabs BID-TID PRN po
     Dates: start: 20101003, end: 20110810
  2. CYMBALTA [Concomitant]
  3. AMBIEN [Concomitant]
  4. LORAZEPAM [Concomitant]

REACTIONS (9)
  - Convulsion [None]
  - Anxiety [None]
  - Poor quality sleep [None]
  - Disturbance in attention [None]
  - Impaired work ability [None]
  - Emotional disorder [None]
  - Contusion [None]
  - Tongue biting [None]
  - Economic problem [None]
